FAERS Safety Report 15928608 (Version 1)
Quarter: 2019Q1

REPORT INFORMATION
  Report Type: Spontaneous
  Country: US (occurrence: US)
  Receive Date: 20190206
  Receipt Date: 20190206
  Transmission Date: 20190417
  Serious: No
  Sender: FDA-Public Use
  Company Number: US-SA-2019SA024618

PATIENT
  Age: 54 Year
  Sex: Male

DRUGS (1)
  1. DOCETAXEL. [Suspect]
     Active Substance: DOCETAXEL
     Indication: PROSTATE CANCER STAGE IV
     Dosage: UNK, UNK
     Route: 048

REACTIONS (2)
  - Dyspnoea [Unknown]
  - Chest discomfort [Unknown]
